FAERS Safety Report 23318766 (Version 1)
Quarter: 2023Q4

REPORT INFORMATION
  Report Type: Spontaneous
  Country: US (occurrence: US)
  Receive Date: 20231220
  Receipt Date: 20231220
  Transmission Date: 20240110
  Serious: No
  Sender: FDA-Public Use
  Company Number: ENDG23-01878

PATIENT
  Sex: Female

DRUGS (3)
  1. MINOXIDIL [Suspect]
     Active Substance: MINOXIDIL
     Indication: Hair disorder
     Dosage: 1 DF (X 2.5 MG), DAILY
     Route: 048
     Dates: start: 202211
  2. MINOXIDIL [Suspect]
     Active Substance: MINOXIDIL
     Dosage: 0.5 DF (X 2.5 MG), DAILY
     Route: 048
     Dates: start: 202212
  3. MULTIVITAMIN                       /00097801/ [Concomitant]
     Indication: Product used for unknown indication
     Dosage: UNK UNKNOWN, UNKNOWN
     Route: 065

REACTIONS (3)
  - Hair growth abnormal [Not Recovered/Not Resolved]
  - Drug ineffective for unapproved indication [Unknown]
  - Off label use [Unknown]

NARRATIVE: CASE EVENT DATE: 20221101
